FAERS Safety Report 5448365-6 (Version None)
Quarter: 2007Q3

REPORT INFORMATION
  Report Type: 
  Country: None (occurrence: None)
  Receive Date: 20070905
  Receipt Date: 20070820
  Transmission Date: 20080115
  Serious: Yes (Hospitalization)
  Sender: FDA-Public Use
  Company Number: ALK_00299_2007

PATIENT
  Sex: Male
  Weight: 94.3482 kg

DRUGS (9)
  1. VIVITROL [Suspect]
     Indication: ALCOHOLISM
     Dosage: 380 MG 1X/MONTH INTRAMUSCULAR
     Route: 030
     Dates: start: 20070227, end: 20070711
  2. EFFEXOR XR [Concomitant]
  3. CAMPRAL [Concomitant]
  4. NEURONTIN [Concomitant]
  5. PROPRANOLOL [Concomitant]
  6. BENICAR [Concomitant]
  7. SEROQUEL [Concomitant]
  8. ACETAMINOPHEN [Concomitant]
  9. VICODIN [Concomitant]

REACTIONS (20)
  - ABDOMINAL PAIN [None]
  - ALCOHOL WITHDRAWAL SYNDROME [None]
  - ALCOHOLISM [None]
  - BLOOD POTASSIUM DECREASED [None]
  - BODY TEMPERATURE INCREASED [None]
  - BURNING SENSATION [None]
  - DEHYDRATION [None]
  - DELIRIUM TREMENS [None]
  - DRUG WITHDRAWAL SYNDROME [None]
  - FEELING HOT [None]
  - FOOT FRACTURE [None]
  - HAEMATOCRIT DECREASED [None]
  - HAEMOGLOBIN DECREASED [None]
  - HEPATIC ENZYME INCREASED [None]
  - HEPATITIS ALCOHOLIC [None]
  - HYPONATRAEMIA [None]
  - HYPOTENSION [None]
  - INSOMNIA [None]
  - RENAL FAILURE ACUTE [None]
  - WHITE BLOOD CELL COUNT DECREASED [None]
